FAERS Safety Report 8208432-0 (Version None)
Quarter: 2012Q1

REPORT INFORMATION
  Report Type: 
  Country: None (occurrence: None)
  Receive Date: 20120227
  Receipt Date: 20111031
  Transmission Date: 20120608
  Serious: No
  Sender: FDA-Public Use
  Company Number: 334589

PATIENT
  Age: 64 Year
  Sex: Male

DRUGS (5)
  1. CELEBREX [Suspect]
     Indication: PRODUCT USED FOR UNKNOWN INDICATION
  2. VICTOZA [Suspect]
     Indication: TYPE 2 DIABETES MELLITUS
     Dosage: 0.6 MG, QD, SUBCUTANEOUS;  1.2 MG, QD, SUBCUTANEOUS
     Route: 058
     Dates: start: 20110401
  3. GLIMEPIRIDE (GLIMEPIRIDE0 [Concomitant]
  4. METFORMIN HCL [Concomitant]
  5. TRADJENTA (LINAGLIPTIN) [Concomitant]

REACTIONS (6)
  - ABDOMINAL DISTENSION [None]
  - INJECTION SITE REACTION [None]
  - ABDOMINAL PAIN UPPER [None]
  - DYSPNOEA [None]
  - BLOOD GLUCOSE DECREASED [None]
  - ABDOMINAL PAIN [None]
